FAERS Safety Report 5823089-1 (Version None)
Quarter: 2008Q3

REPORT INFORMATION
  Report Type: 
  Country: None (occurrence: None)
  Receive Date: 20080724
  Receipt Date: 20080724
  Transmission Date: 20090109
  Serious: Yes (Other)
  Sender: FDA-Public Use
  Company Number: None

PATIENT
  Age: 13 Year
  Sex: Female

DRUGS (2)
  1. SEROQUEL [Suspect]
     Indication: AGGRESSION
     Dosage: SEE IMAGE
     Route: 048
     Dates: start: 20071114
  2. NALTREXONE 25MG PO QD [Suspect]
     Indication: INTENTIONAL SELF-INJURY
     Dosage: 25 MG, PO
     Route: 048
     Dates: start: 20071120

REACTIONS (5)
  - AGGRESSION [None]
  - ATHETOSIS [None]
  - CHOREOATHETOSIS [None]
  - EXTRAPYRAMIDAL DISORDER [None]
  - INTENTIONAL SELF-INJURY [None]
